FAERS Safety Report 7299162-0 (Version None)
Quarter: 2011Q1

REPORT INFORMATION
  Report Type: 
  Country: None (occurrence: None)
  Receive Date: 20110217
  Receipt Date: 20110211
  Transmission Date: 20110831
  Serious: Yes (Hospitalization, Other)
  Sender: FDA-Public Use
  Company Number: DE-ABBOTT-10P-062-0629698-01

PATIENT
  Sex: Male
  Weight: 100 kg

DRUGS (9)
  1. METFORMIN [Concomitant]
     Indication: DIABETES MELLITUS
     Route: 048
     Dates: start: 20061001
  2. HUMIRA [Suspect]
     Indication: RHEUMATOID ARTHRITIS
     Route: 058
     Dates: start: 20070829, end: 20080102
  3. NOVONORM [Concomitant]
     Indication: DIABETES MELLITUS
     Route: 048
     Dates: start: 20061001
  4. PREDNISOLONE [Concomitant]
     Indication: RHEUMATOID ARTHRITIS
  5. METHOTREXATE [Concomitant]
     Indication: RHEUMATOID ARTHRITIS
     Route: 042
     Dates: start: 20070829, end: 20080102
  6. FOLIC ACID [Concomitant]
     Indication: PRODUCT USED FOR UNKNOWN INDICATION
  7. ALLOPURINOL [Concomitant]
     Indication: HYPERURICAEMIA
     Dates: start: 20070807
  8. CALCIUM W/VITAMIN D [Concomitant]
     Indication: PRODUCT USED FOR UNKNOWN INDICATION
     Route: 048
     Dates: start: 20070808
  9. RAMIPRIL [Concomitant]
     Indication: HYPERTENSION
     Dates: start: 20061001

REACTIONS (2)
  - VITH NERVE PARALYSIS [None]
  - DIPLOPIA [None]
